FAERS Safety Report 6732888-3 (Version None)
Quarter: 2010Q2

REPORT INFORMATION
  Report Type: 
  Country: None (occurrence: None)
  Receive Date: 20100519
  Receipt Date: 20100507
  Transmission Date: 20101027
  Serious: Yes (Hospitalization)
  Sender: FDA-Public Use
  Company Number: US-WATSON-2010-06612

PATIENT
  Age: 80 Year
  Sex: Female

DRUGS (3)
  1. LEVETIRACETAM [Suspect]
     Indication: CONVULSION
     Dosage: 1000 MG, BID
     Route: 048
  2. AMIODARONE [Suspect]
     Indication: DRUG USE FOR UNKNOWN INDICATION
     Dosage: 400 MG BID X10 D THEN 200MG QD
     Route: 048
  3. AMIODARONE [Suspect]
     Dosage: 200 MG, DAILY
     Route: 048

REACTIONS (1)
  - DELIRIUM [None]
